FAERS Safety Report 5282999-7 (Version None)
Quarter: 2007Q1

REPORT INFORMATION
  Report Type: 
  Country: None (occurrence: None)
  Receive Date: 20070329
  Receipt Date: 20070329
  Transmission Date: 20070707
  Serious: Yes (Hospitalization)
  Sender: FDA-Public Use
  Company Number: None

PATIENT
  Age: 60 Year
  Sex: Male

DRUGS (8)
  1. CAPECITABINE 1500MG BID X [Suspect]
     Indication: RECTAL CANCER STAGE IV
     Dosage: ROUND IN NOV AND DEC 06
     Dates: start: 20061101, end: 20070118
  2. EMULSION TOPICAL CREAM [Concomitant]
  3. FENTANYL TRANSDERMAL SYSTEM [Concomitant]
  4. LOPERAMIDE HCL [Concomitant]
  5. PERCOCET [Concomitant]
  6. POTASSIUM CHLORIDE [Concomitant]
  7. PHENERGAN HCL [Concomitant]
  8. PYRIDOXINE HCL [Concomitant]

REACTIONS (4)
  - HYPOAESTHESIA [None]
  - PAIN IN EXTREMITY [None]
  - PALMAR-PLANTAR ERYTHRODYSAESTHESIA SYNDROME [None]
  - SKIN LESION [None]
